FAERS Safety Report 19494109 (Version 3)
Quarter: 2021Q3

REPORT INFORMATION
  Report Type: Report from Study
  Country: JP (occurrence: JP)
  Receive Date: 20210705
  Receipt Date: 20210906
  Transmission Date: 20211014
  Serious: Yes (Hospitalization, Other)
  Sender: FDA-Public Use
  Company Number: JP-BRISTOL-MYERS SQUIBB COMPANY-BMS-2021-064405

PATIENT
  Age: 67 Year
  Sex: Male
  Weight: 52.8 kg

DRUGS (13)
  1. FLUMETHOLON [Concomitant]
     Active Substance: FLUOROMETHOLONE
     Indication: LACRIMATION INCREASED
     Dosage: 1 DOSAGE FORM= 1 UNITS NOS, PRN
     Route: 047
     Dates: start: 20210603
  2. PROPETO [Concomitant]
     Active Substance: PETROLATUM
     Indication: PALMAR-PLANTAR ERYTHRODYSAESTHESIA SYNDROME
     Dosage: 1 DOSAGE FORM = 1 UNITS NOS, PRN
     Route: 061
     Dates: start: 20180517
  3. RINDERON [BETAMETHASONE] [Concomitant]
     Active Substance: BETAMETHASONE
     Indication: CHEILITIS
     Dosage: 1 DOSAGE FORM= 1 UNITS NOS, PRN
     Route: 061
     Dates: start: 20210608
  4. RINDERON [BETAMETHASONE] [Concomitant]
     Active Substance: BETAMETHASONE
     Indication: PARONYCHIA
  5. OXYDOL [Concomitant]
     Indication: PARONYCHIA
     Dosage: 1 DOSAGE FORM= 1 UNITS NOS, PRN
     Route: 061
     Dates: start: 20161024
  6. FUCIDIN LEO [Concomitant]
     Active Substance: FUSIDATE SODIUM
     Indication: PARONYCHIA
     Dosage: 1 DOSAGE FORM= 1 UNITS NOS, PRN
     Route: 061
     Dates: start: 20161111
  7. AZUNOL [SODIUM GUALENATE] [Concomitant]
     Active Substance: SODIUM GUALENATE
     Indication: CHEILITIS
     Dosage: 1 DOSAGE FORM= 1 UNITS NOS, PRN
     Route: 061
     Dates: start: 20210608
  8. FRANCETIN T [NEOMYCIN SULFATE;TRYPSIN] [Concomitant]
     Indication: PARONYCHIA
     Dosage: 1 DOSAGE FORM= 1 UNITS NOS, PRN
     Route: 061
     Dates: start: 20161024
  9. RINDERON [BETAMETHASONE] [Concomitant]
     Active Substance: BETAMETHASONE
     Indication: PALMAR-PLANTAR ERYTHRODYSAESTHESIA SYNDROME
  10. PROPETO [Concomitant]
     Active Substance: PETROLATUM
     Indication: CHEILITIS
     Dosage: 1 DOSAGE FORM = 1 UNITS NOS, PRN
     Route: 061
     Dates: start: 20210608
  11. TRESIBA [Concomitant]
     Active Substance: INSULIN DEGLUDEC
     Indication: PRODUCT USED FOR UNKNOWN INDICATION
     Dosage: UNK, QD
     Route: 058
     Dates: start: 20180122
  12. NIVOLUMAB [Suspect]
     Active Substance: NIVOLUMAB
     Indication: GASTRIC CANCER
     Dosage: 360 MILLIGRAM, Q3WK
     Route: 041
     Dates: start: 20160713
  13. BESOFTEN [Concomitant]
     Active Substance: PENTOSAN POLYSULFATE SODIUM
     Indication: PALMAR-PLANTAR ERYTHRODYSAESTHESIA SYNDROME
     Dosage: 1 DOSAGE FORM = 1 UNITS NOS, PRN
     Route: 061
     Dates: start: 20180517

REACTIONS (2)
  - Stomatitis [Recovering/Resolving]
  - Dermatitis bullous [Recovering/Resolving]

NARRATIVE: CASE EVENT DATE: 20210625
